FAERS Safety Report 24071751 (Version 1)
Quarter: 2024Q3

REPORT INFORMATION
  Report Type: Report from Study
  Country: US (occurrence: US)
  Receive Date: 20240710
  Receipt Date: 20240710
  Transmission Date: 20241016
  Serious: No
  Sender: ROCHE
  Company Number: US-ROCHE-3489511

PATIENT
  Age: 35 Year
  Sex: Female

DRUGS (1)
  1. EVRYSDI [Suspect]
     Active Substance: RISDIPLAM
     Indication: Spinal muscular atrophy
     Route: 065

REACTIONS (6)
  - Fatigue [Unknown]
  - Mucosal disorder [Unknown]
  - Productive cough [Unknown]
  - Drug ineffective [Unknown]
  - Fatigue [Unknown]
  - Renal disorder [Unknown]
